FAERS Safety Report 12280572 (Version 1)
Quarter: 2016Q2

REPORT INFORMATION
  Report Type: Spontaneous
  Country: US (occurrence: US)
  Receive Date: 20160419
  Receipt Date: 20160419
  Transmission Date: 20160815
  Serious: Yes (Other)
  Sender: FDA-Public Use
  Company Number: US-BAXTER-2016BAX019868

PATIENT
  Age: 44 Year
  Sex: Male
  Weight: 82.17 kg

DRUGS (2)
  1. TISSEEL [Suspect]
     Active Substance: FIBRINOGEN HUMAN\THROMBIN HUMAN
     Indication: PRODUCT USED FOR UNKNOWN INDICATION
     Route: 065
  2. FLOSEAL MATRIX [Suspect]
     Active Substance: THROMBIN
     Indication: PRODUCT USED FOR UNKNOWN INDICATION
     Route: 065

REACTIONS (4)
  - Incision site infection [Unknown]
  - Enterobacter bacteraemia [Unknown]
  - Enterobacter infection [Unknown]
  - Sepsis [Unknown]
